FAERS Safety Report 5317016-3 (Version None)
Quarter: 2007Q2

REPORT INFORMATION
  Report Type: 
  Country: None (occurrence: None)
  Receive Date: 20070504
  Receipt Date: 20070424
  Transmission Date: 20071010
  Serious: Yes (Other)
  Sender: FDA-Public Use
  Company Number: US-PFIZER INC-2007035192

PATIENT
  Age: 82 Year
  Sex: Female

DRUGS (1)
  1. PROCARDIA [Suspect]
     Indication: HYPERTENSION

REACTIONS (3)
  - ATRIAL FIBRILLATION [None]
  - AUTONOMIC FAILURE SYNDROME [None]
  - SPINAL COLUMN STENOSIS [None]
